FAERS Safety Report 9036929 (Version 1)
Quarter: 2012Q4

REPORT INFORMATION
  Report Type: Spontaneous
  Country: US (occurrence: None)
  Receive Date: 20121221
  Receipt Date: 20121221
  Transmission Date: 20130627
  Serious: Yes (Other)
  Sender: FDA-Public Use
  Company Number: US-145358

PATIENT
  Age: 74 Year
  Sex: Female
  Weight: 59 kg

DRUGS (2)
  1. WINRHO SDF LIQUID [Suspect]
     Indication: AUTOIMMUNE THROMBOCYTOPENIA
     Dosage: Total
     Route: 042
     Dates: start: 20121101, end: 20121101
  2. RED BLOOD CELLS [Concomitant]

REACTIONS (8)
  - Anaphylactic reaction [None]
  - Chills [None]
  - Pyrexia [None]
  - Tachycardia [None]
  - Blood pressure systolic increased [None]
  - Unresponsive to stimuli [None]
  - Unresponsive to stimuli [None]
  - Hypotension [None]
